FAERS Safety Report 9505368 (Version 1)
Quarter: 2013Q1

REPORT INFORMATION
  Report Type: Spontaneous
  Country: US (occurrence: None)
  Receive Date: 20130220
  Receipt Date: 20130220
  Transmission Date: 20140127
  Serious: No
  Sender: FDA-Public Use
  Company Number: 1000040459

PATIENT
  Age: 43 Year
  Sex: Male

DRUGS (3)
  1. VIIBRYD (VILAZODONE HYDROCHLORIDE) (TABLETS) [Suspect]
     Indication: ANXIETY
     Route: 048
     Dates: start: 20121105, end: 20121112
  2. VIIBRYD (VILAZODONE HYDROCHLORIDE) (TABLETS) [Suspect]
     Indication: PSYCHOMOTOR HYPERACTIVITY
     Route: 048
     Dates: start: 20121105, end: 20121112
  3. ANTACID NOS (ANTACID NOS) (ANTACID NOS) [Concomitant]

REACTIONS (6)
  - Fall [None]
  - Balance disorder [None]
  - Dizziness [None]
  - Headache [None]
  - Nausea [None]
  - Off label use [None]
